FAERS Safety Report 22289380 (Version 1)
Quarter: 2023Q2

REPORT INFORMATION
  Report Type: Spontaneous
  Country: US (occurrence: None)
  Receive Date: 20230504
  Receipt Date: 20230504
  Transmission Date: 20230722
  Serious: Yes (Other)
  Sender: FDA-Public Use
  Company Number: None

PATIENT
  Age: 40 Year
  Sex: Female
  Weight: 96.75 kg

DRUGS (2)
  1. OZEMPIC [Suspect]
     Active Substance: SEMAGLUTIDE
     Indication: Gestational diabetes
     Dosage: OTHER FREQUENCY : QWEEK;?
     Route: 058
  2. OZEMPIC [Suspect]
     Active Substance: SEMAGLUTIDE
     Indication: Gestational diabetes

REACTIONS (8)
  - Drug dispensed to wrong patient [None]
  - Wrong product administered [None]
  - Exposure during pregnancy [None]
  - Foetal exposure during pregnancy [None]
  - Maternal condition affecting foetus [None]
  - Product communication issue [None]
  - Abdominal distension [None]
  - Gastrooesophageal reflux disease [None]

NARRATIVE: CASE EVENT DATE: 20230504
